FAERS Safety Report 4286081-7 (Version None)
Quarter: 2004Q1

REPORT INFORMATION
  Report Type: 
  Country: None (occurrence: None)
  Receive Date: 20040114
  Receipt Date: 20030225
  Transmission Date: 20041129
  Serious: Yes (Hospitalization)
  Sender: FDA-Public Use
  Company Number: 332461

PATIENT
  Age: 50 Year
  Sex: Female

DRUGS (4)
  1. ROCEPHIN [Suspect]
     Indication: PNEUMONIA
     Dosage: 1 GRAM  1 PER 24 HOUR INTRAVENOUS
     Route: 042
     Dates: start: 20030211, end: 20030213
  2. ALBUTEROL [Concomitant]
  3. OXYGEN (OXYGEN) [Concomitant]
  4. SOLU-MEDROL [Concomitant]

REACTIONS (2)
  - DRUG INEFFECTIVE [None]
  - PNEUMONIA [None]
